FAERS Safety Report 9831671 (Version 1)
Quarter: 2014Q1

REPORT INFORMATION
  Report Type: Spontaneous
  Country: BR (occurrence: BR)
  Receive Date: 20140121
  Receipt Date: 20140121
  Transmission Date: 20141002
  Serious: Yes (Other)
  Sender: FDA-Public Use
  Company Number: BR-JNJFOC-20140109246

PATIENT
  Sex: Male

DRUGS (10)
  1. RISPERIDONE [Suspect]
     Indication: PANIC DISORDER
     Route: 065
     Dates: start: 2005
  2. LORAX [Concomitant]
     Indication: PANIC DISORDER
     Route: 065
     Dates: start: 2005
  3. RIVOTRIL [Concomitant]
     Indication: PANIC DISORDER
     Route: 065
  4. TRANXENE [Concomitant]
     Indication: PANIC DISORDER
     Route: 065
     Dates: start: 2005
  5. ESCITALOPRAM [Concomitant]
     Indication: PANIC DISORDER
     Route: 065
  6. AMITRIPTYLINE [Concomitant]
     Indication: PANIC DISORDER
     Route: 065
     Dates: start: 2005
  7. FLUOXETINE [Concomitant]
     Indication: PANIC DISORDER
     Route: 065
     Dates: start: 2005
  8. VENLAFAXINE [Concomitant]
     Indication: PANIC DISORDER
     Route: 065
     Dates: start: 2005
  9. ANAFRANIL [Concomitant]
     Indication: PANIC DISORDER
     Route: 065
     Dates: start: 2005
  10. IMIPRAMINE [Concomitant]
     Indication: PANIC DISORDER
     Route: 065
     Dates: start: 2005

REACTIONS (5)
  - Drug dependence [Not Recovered/Not Resolved]
  - Visual impairment [Unknown]
  - Off label use [Unknown]
  - Panic disorder [Not Recovered/Not Resolved]
  - Asthenia [Not Recovered/Not Resolved]
